FAERS Safety Report 7467552-9 (Version None)
Quarter: 2011Q2

REPORT INFORMATION
  Report Type: 
  Country: None (occurrence: None)
  Receive Date: 20110509
  Receipt Date: 20110425
  Transmission Date: 20111010
  Serious: Yes (Life-Threatening, Hospitalization, Other)
  Sender: FDA-Public Use
  Company Number: US-BAYER-200943679NA

PATIENT
  Age: 34 Year
  Sex: Female
  Weight: 88.435 kg

DRUGS (11)
  1. CYCLOBENZAPRINE [Concomitant]
     Dosage: 10 MG, UNK
     Route: 048
     Dates: start: 20020401, end: 20090101
  2. MIDRIN [Concomitant]
     Dosage: UNK
     Route: 048
     Dates: start: 20020401, end: 20090101
  3. NABUMETONE [Concomitant]
     Indication: PAIN
     Dosage: UNK
     Dates: start: 20050101, end: 20090101
  4. YASMIN [Suspect]
     Indication: CONTRACEPTION
     Dosage: UNK
     Dates: start: 20071201, end: 20080101
  5. FLEXERIL [Concomitant]
     Indication: PAIN
     Dosage: UNK
     Dates: start: 20020101, end: 20090101
  6. SSD [Concomitant]
     Dosage: UNK
     Route: 061
     Dates: start: 20080701
  7. TRIAMCINOLONE ACETONIDE [Concomitant]
     Dosage: UNK
     Route: 061
     Dates: start: 20060511
  8. TRAMADOL HCL [Concomitant]
     Dosage: 50 ML, UNK
     Route: 048
     Dates: start: 20060627, end: 20081101
  9. LOPERAMIDE [Concomitant]
  10. YASMIN [Suspect]
     Indication: ACNE
     Dosage: UNK
     Dates: start: 20071201, end: 20090101
  11. ACETAMINOPHEN AND HYDROCODONE BITARTRATE [Concomitant]
     Dosage: UNK
     Route: 048
     Dates: start: 20000129, end: 20090101

REACTIONS (4)
  - INJURY [None]
  - GALLBLADDER DISORDER [None]
  - CHOLELITHIASIS [None]
  - ORGAN FAILURE [None]
